FAERS Safety Report 15889910 (Version 1)
Quarter: 2019Q1

REPORT INFORMATION
  Report Type: Spontaneous
  Country: IT (occurrence: IT)
  Receive Date: 20190130
  Receipt Date: 20190130
  Transmission Date: 20190417
  Serious: Yes (Death, Hospitalization)
  Sender: FDA-Public Use
  Company Number: IT-BAYER-200512722GDS

PATIENT
  Age: 81 Year
  Sex: Female

DRUGS (5)
  1. GALANTAMINE. [Suspect]
     Active Substance: GALANTAMINE
     Indication: DEMENTIA ALZHEIMER^S TYPE
     Dosage: 14 MG, QD
     Route: 048
     Dates: start: 20050304, end: 20050602
  2. GLIBOMET [Suspect]
     Active Substance: GLYBURIDE\METFORMIN HYDROCHLORIDE
     Indication: DIABETES MELLITUS
     Dosage: 2 DF, QD
     Route: 048
     Dates: start: 20050304, end: 20050617
  3. CARDIOASPIRIN [Suspect]
     Active Substance: ASPIRIN
     Indication: UNEVALUABLE EVENT
     Dosage: 100 MG (DAILY DOSE), QD, ORAL
     Route: 048
     Dates: start: 20050304, end: 20050617
  4. ESCITALOPRAM [Concomitant]
     Active Substance: ESCITALOPRAM OXALATE
     Indication: DEPRESSION
     Dosage: 10 MG (DAILY DOSE), QD, ORAL
     Route: 048
  5. MINIAS [Concomitant]
     Active Substance: LORMETAZEPAM
     Indication: DEPRESSION
     Dosage: 10 DF (DAILY DOSE), QD, ORAL
     Route: 048
     Dates: start: 20050617, end: 20050617

REACTIONS (4)
  - Fall [Not Recovered/Not Resolved]
  - Seizure [Not Recovered/Not Resolved]
  - Confusional state [Unknown]
  - Apnoeic attack [Not Recovered/Not Resolved]

NARRATIVE: CASE EVENT DATE: 20050401
